FAERS Safety Report 4375590-8 (Version None)
Quarter: 2004Q2

REPORT INFORMATION
  Report Type: 
  Country: None (occurrence: None)
  Receive Date: 20040607
  Receipt Date: 20040525
  Transmission Date: 20050107
  Serious: Yes (Other)
  Sender: FDA-Public Use
  Company Number: 2004035364

PATIENT
  Age: 70 Year
  Sex: Male
  Weight: 92.9874 kg

DRUGS (6)
  1. VIAGRA [Suspect]
     Indication: ERECTILE DYSFUNCTION
     Dosage: 50 MG (50 MG, AS NEEDED), ORAL
     Route: 048
  2. BETA BLOCKING AGENTS [Concomitant]
  3. DIURETICS [Concomitant]
  4. ACE INHIBITOR NOS [Concomitant]
  5. CALCIUM CHANNEL BLOCKERS      (CALCIUM CHANNEL BLOCKERS) [Concomitant]
  6. CLOPIDOGREL BISULFATE [Concomitant]

REACTIONS (3)
  - ERECTILE DYSFUNCTION [None]
  - POST PROCEDURAL COMPLICATION [None]
  - PROSTATE CANCER [None]
